FAERS Safety Report 24404306 (Version 1)
Quarter: 2024Q4

REPORT INFORMATION
  Report Type: Spontaneous
  Country: US (occurrence: US)
  Receive Date: 20241007
  Receipt Date: 20241007
  Transmission Date: 20250115
  Serious: No
  Sender: Haleon PLC
  Company Number: US-HALEON-2200394

PATIENT
  Age: 70 Year
  Sex: Female

DRUGS (1)
  1. SENSODYNE PRONAMEL GENTLE WHITENING ADVANCED [Suspect]
     Active Substance: POTASSIUM NITRATE\SODIUM FLUORIDE
     Indication: Product used for unknown indication
     Dosage: EXPDATE:20251031

REACTIONS (1)
  - Oral mucosal exfoliation [Unknown]
